FAERS Safety Report 9940438 (Version 1)
Quarter: 2014Q1

REPORT INFORMATION
  Report Type: Spontaneous
  Country: NL (occurrence: NL)
  Receive Date: 20140303
  Receipt Date: 20140303
  Transmission Date: 20141002
  Serious: Yes (Other)
  Sender: FDA-Public Use
  Company Number: NL-ABBVIE-14P-114-1206092-00

PATIENT
  Age: 25 Year
  Sex: Female
  Weight: 125 kg

DRUGS (1)
  1. HUMIRA [Suspect]
     Indication: CROHN^S DISEASE
     Route: 058
     Dates: start: 20121201, end: 20131231

REACTIONS (1)
  - Systemic lupus erythematosus [Recovering/Resolving]
